FAERS Safety Report 8439287-7 (Version None)
Quarter: 2012Q2

REPORT INFORMATION
  Report Type: 
  Country: None (occurrence: None)
  Receive Date: 20120615
  Receipt Date: 20120611
  Transmission Date: 20120825
  Serious: Yes (Other)
  Sender: FDA-Public Use
  Company Number: PHHY2012JP050891

PATIENT

DRUGS (2)
  1. COMTAN [Suspect]
     Route: 048
  2. EC DOPARL [Concomitant]

REACTIONS (2)
  - WRONG TECHNIQUE IN DRUG USAGE PROCESS [None]
  - DYSPHAGIA [None]
